FAERS Safety Report 14894084 (Version 2)
Quarter: 2018Q3

REPORT INFORMATION
  Report Type: Spontaneous
  Country: IE (occurrence: IE)
  Receive Date: 20180514
  Receipt Date: 20180720
  Transmission Date: 20181010
  Serious: Yes (Death)
  Sender: FDA-Public Use
  Company Number: IE-ASTRAZENECA-2018SE62909

PATIENT
  Age: 25 Year
  Sex: Male

DRUGS (5)
  1. GERMENTIN [Suspect]
     Active Substance: AMOXICILLIN\CLAVULANATE POTASSIUM
     Route: 065
  2. FLUOXETINE [Suspect]
     Active Substance: FLUOXETINE HYDROCHLORIDE
     Route: 048
  3. XENICAL [Suspect]
     Active Substance: ORLISTAT
     Route: 065
  4. ZOPITAN [Suspect]
     Active Substance: ZOPICLONE
     Route: 065
  5. OMEPRAZOLE. [Suspect]
     Active Substance: OMEPRAZOLE
     Dosage: PINEWOOD (NON AZ)
     Route: 048

REACTIONS (2)
  - Homicide [Fatal]
  - Completed suicide [Fatal]

NARRATIVE: CASE EVENT DATE: 20151011
